FAERS Safety Report 14534436 (Version 2)
Quarter: 2018Q2

REPORT INFORMATION
  Report Type: Other
  Country: FR (occurrence: FR)
  Receive Date: 20180215
  Receipt Date: 20180422
  Transmission Date: 20180711
  Serious: Yes (Other)
  Sender: FDA-Public Use
  Company Number: FR-APOTEX-2018AP006611

PATIENT
  Age: 40 Year
  Sex: Male

DRUGS (1)
  1. DEROXAT [Suspect]
     Active Substance: PAROXETINE HYDROCHLORIDE
     Dosage: 10 MG, QD
     Route: 048
     Dates: start: 2007, end: 201711

REACTIONS (1)
  - Blood parathyroid hormone increased [Recovered/Resolved]

NARRATIVE: CASE EVENT DATE: 20170509
